FAERS Safety Report 16776124 (Version 2)
Quarter: 2020Q2

REPORT INFORMATION
  Report Type: Spontaneous
  Country: US (occurrence: US)
  Receive Date: 20190905
  Receipt Date: 20200422
  Transmission Date: 20200713
  Serious: No
  Sender: FDA-Public Use
  Company Number: US-PFIZER INC-2017042666

PATIENT
  Age: 49 Year
  Sex: Female

DRUGS (3)
  1. LYRICA [Suspect]
     Active Substance: PREGABALIN
     Dosage: 900 MG, DAILY (300 MG CAPSULE / QTY 90 / DAY SUPPLY 30)
  2. LYRICA [Suspect]
     Active Substance: PREGABALIN
     Dosage: 900 MG, DAILY, (300 MG CAPSULE / QTY 270 /DAY SUPPLY 90)
     Dates: start: 1996
  3. LYRICA [Suspect]
     Active Substance: PREGABALIN
     Dosage: 250 MG, 3X/DAY
     Route: 048

REACTIONS (4)
  - Chronic obstructive pulmonary disease [Unknown]
  - Prescribed overdose [Unknown]
  - Limb discomfort [Not Recovered/Not Resolved]
  - Pain in extremity [Unknown]
